FAERS Safety Report 13789593 (Version 1)
Quarter: 2017Q3

REPORT INFORMATION
  Report Type: Spontaneous
  Country: US (occurrence: US)
  Receive Date: 20170725
  Receipt Date: 20170725
  Transmission Date: 20171127
  Serious: No
  Sender: FDA-Public Use
  Company Number: US-UNITED THERAPEUTICS-UNT-2017-001509

PATIENT
  Age: 79 Year
  Sex: Male
  Weight: 64.4 kg

DRUGS (3)
  1. TYVASO [Suspect]
     Active Substance: TREPROSTINIL
     Indication: PULMONARY ARTERIAL HYPERTENSION
  2. SILDENAFIL CITRATE. [Concomitant]
     Active Substance: SILDENAFIL CITRATE
     Indication: PRODUCT USED FOR UNKNOWN INDICATION
  3. TYVASO [Suspect]
     Active Substance: TREPROSTINIL
     Indication: PULMONARY HYPERTENSION
     Dosage: 18-54 MICROGRAMS, QID
     Dates: start: 20170124

REACTIONS (6)
  - Dyspnoea [Unknown]
  - Incorrect dose administered [Recovering/Resolving]
  - Burning sensation [Recovering/Resolving]
  - Insomnia [Unknown]
  - Pain [Recovering/Resolving]
  - Wheezing [Unknown]

NARRATIVE: CASE EVENT DATE: 201701
